FAERS Safety Report 11221011 (Version 1)
Quarter: 2015Q2

REPORT INFORMATION
  Report Type: Spontaneous
  Country: US (occurrence: US)
  Receive Date: 20150626
  Receipt Date: 20150626
  Transmission Date: 20150821
  Serious: No
  Sender: FDA-Public Use
  Company Number: US-AMGEN-USASP2015061150

PATIENT
  Age: 51 Year
  Sex: Female

DRUGS (2)
  1. METHOTREXATE [Concomitant]
     Active Substance: METHOTREXATE
     Dosage: UNK MG, QWK
     Route: 048
     Dates: start: 2009
  2. ENBREL [Suspect]
     Active Substance: ETANERCEPT
     Indication: RHEUMATOID ARTHRITIS
     Dosage: UNK MG, QWK
     Route: 065
     Dates: start: 20090731, end: 201411

REACTIONS (10)
  - Condition aggravated [Unknown]
  - Grip strength decreased [Unknown]
  - Finger deformity [Unknown]
  - Erythema [Unknown]
  - Joint swelling [Unknown]
  - Nodule [Unknown]
  - Limb discomfort [Unknown]
  - Wrist deformity [Unknown]
  - Musculoskeletal discomfort [Unknown]
  - Arthralgia [Unknown]
